FAERS Safety Report 4911875-1 (Version None)
Quarter: 2006Q1

REPORT INFORMATION
  Report Type: 
  Country: None (occurrence: None)
  Receive Date: 20060215
  Receipt Date: 20060203
  Transmission Date: 20060701
  Serious: Yes (Other)
  Sender: FDA-Public Use
  Company Number: DE-JNJFOC-20051201975

PATIENT
  Age: 42 Year
  Sex: Male
  Weight: 82.5 kg

DRUGS (5)
  1. RISPERDAL [Suspect]
     Indication: DRUG USE FOR UNKNOWN INDICATION
     Route: 048
     Dates: start: 20050601
  2. TOPAMAX [Suspect]
     Route: 048
  3. TOPAMAX [Suspect]
     Route: 048
  4. TOPAMAX [Suspect]
     Indication: DRUG USE FOR UNKNOWN INDICATION
     Route: 048
  5. LORAZEPAM [Concomitant]
     Route: 065

REACTIONS (6)
  - ACNE [None]
  - APATHY [None]
  - CONVULSION [None]
  - HYPERTROPHY BREAST [None]
  - REPETITIVE SPEECH [None]
  - WEIGHT INCREASED [None]
